FAERS Safety Report 4837338-X (Version None)
Quarter: 2005Q4

REPORT INFORMATION
  Report Type: 
  Country: None (occurrence: None)
  Receive Date: 20051128
  Receipt Date: 20051115
  Transmission Date: 20060501
  Serious: Yes (Other)
  Sender: FDA-Public Use
  Company Number: FR-JNJFOC-20051103952

PATIENT
  Age: 30 Year
  Sex: Female

DRUGS (7)
  1. REMICADE [Suspect]
     Route: 042
  2. REMICADE [Suspect]
     Indication: CROHN'S DISEASE
     Route: 042
  3. METHOTREXATE [Concomitant]
     Route: 058
  4. CORTANCYL [Concomitant]
     Route: 065
  5. INOHEP [Concomitant]
     Route: 065
  6. TOPALGIC [Concomitant]
     Route: 065
  7. MORPHINE SULFATE [Concomitant]
     Indication: PAIN
     Route: 065

REACTIONS (5)
  - DEEP VEIN THROMBOSIS [None]
  - HYPERTHERMIA [None]
  - INFLAMMATION [None]
  - MYOSITIS [None]
  - PAIN IN EXTREMITY [None]
